FAERS Safety Report 10727054 (Version 3)
Quarter: 2015Q1

REPORT INFORMATION
  Report Type: Spontaneous
  Country: US (occurrence: US)
  Receive Date: 20150121
  Receipt Date: 20150324
  Transmission Date: 20150721
  Serious: Yes (Hospitalization)
  Sender: FDA-Public Use
  Company Number: US-UNITED THERAPEUTICS-UNT-2015-000454

PATIENT
  Age: 68 Year
  Sex: Female
  Weight: 89.57 kg

DRUGS (2)
  1. LETAIRIS [Concomitant]
     Active Substance: AMBRISENTAN
     Indication: PRODUCT USED FOR UNKNOWN INDICATION
  2. TYVASO [Suspect]
     Active Substance: TREPROSTINIL
     Indication: PULMONARY ARTERIAL HYPERTENSION
     Dosage: 18-54 ?G, QID
     Dates: start: 20140812

REACTIONS (8)
  - Renal failure [Recovered/Resolved]
  - Fall [Recovered/Resolved]
  - Urosepsis [Recovered/Resolved]
  - Acute respiratory failure [Recovered/Resolved]
  - Syncope [Recovered/Resolved]
  - Sepsis [Recovered/Resolved]
  - Acute hepatic failure [Recovered/Resolved]
  - Cardiac disorder [Unknown]

NARRATIVE: CASE EVENT DATE: 20150111
